FAERS Safety Report 19376145 (Version 2)
Quarter: 2021Q2

REPORT INFORMATION
  Report Type: Report from Study
  Country: None (occurrence: US)
  Receive Date: 20210605
  Receipt Date: 20210617
  Transmission Date: 20210717
  Serious: Yes (Hospitalization, Other)
  Sender: FDA-Public Use
  Company Number: US-ABBVIE-21K-163-3933122-00

PATIENT
  Age: 56 Year
  Sex: Female
  Weight: 70.37 kg

DRUGS (4)
  1. RINVOQ [Suspect]
     Active Substance: UPADACITINIB
     Indication: RHEUMATOID ARTHRITIS
     Route: 048
     Dates: start: 20210414, end: 20210506
  2. METHOTREXATE. [Concomitant]
     Active Substance: METHOTREXATE
     Indication: RHEUMATOID ARTHRITIS
  3. SULFASALAZINE. [Concomitant]
     Active Substance: SULFASALAZINE
     Indication: RHEUMATOID ARTHRITIS
  4. SIMPONI [Concomitant]
     Active Substance: GOLIMUMAB
     Indication: PRODUCT USED FOR UNKNOWN INDICATION

REACTIONS (10)
  - SARS-CoV-2 test positive [Recovered/Resolved]
  - Pericardial effusion [Recovering/Resolving]
  - Pulmonary thrombosis [Unknown]
  - Pneumonia [Recovered/Resolved]
  - Oedema peripheral [Recovering/Resolving]
  - Lung neoplasm malignant [Not Recovered/Not Resolved]
  - Pleural effusion [Recovering/Resolving]
  - Paraesthesia [Recovered/Resolved]
  - Back pain [Not Recovered/Not Resolved]
  - Arthralgia [Not Recovered/Not Resolved]

NARRATIVE: CASE EVENT DATE: 20210501
